FAERS Safety Report 12753881 (Version 1)
Quarter: 2016Q3

REPORT INFORMATION
  Report Type: Report from Study
  Country: US (occurrence: US)
  Receive Date: 20160916
  Receipt Date: 20160916
  Transmission Date: 20161109
  Serious: Yes (Other)
  Sender: FDA-Public Use
  Company Number: US-ROCHE-1829208

PATIENT
  Age: 56 Year
  Sex: Male
  Weight: 77 kg

DRUGS (12)
  1. TEMSIROLIMUS [Suspect]
     Active Substance: TEMSIROLIMUS
     Dosage: COURSE 8
     Route: 042
     Dates: start: 20100810
  2. TEMSIROLIMUS [Suspect]
     Active Substance: TEMSIROLIMUS
     Dosage: COURSE 2
     Route: 042
     Dates: start: 20100209
  3. BEVACIZUMAB [Suspect]
     Active Substance: BEVACIZUMAB
     Dosage: COURSE 2
     Route: 042
     Dates: start: 20100209
  4. TEMSIROLIMUS [Suspect]
     Active Substance: TEMSIROLIMUS
     Dosage: COURSE 3
     Route: 042
     Dates: start: 20100316
  5. TEMSIROLIMUS [Suspect]
     Active Substance: TEMSIROLIMUS
     Dosage: COURSE 4
     Route: 042
     Dates: start: 20100413
  6. TEMSIROLIMUS [Suspect]
     Active Substance: TEMSIROLIMUS
     Dosage: COURSE 5
     Route: 042
     Dates: start: 20100518
  7. TEMSIROLIMUS [Suspect]
     Active Substance: TEMSIROLIMUS
     Dosage: COURSE 9
     Route: 042
     Dates: start: 20100907
  8. TEMSIROLIMUS [Suspect]
     Active Substance: TEMSIROLIMUS
     Dosage: COURSE 7
     Route: 042
     Dates: start: 20100713
  9. TEMSIROLIMUS [Suspect]
     Active Substance: TEMSIROLIMUS
     Dosage: COURSE 6
     Route: 042
     Dates: start: 20100615
  10. TEMSIROLIMUS [Suspect]
     Active Substance: TEMSIROLIMUS
     Dosage: COURSE 10, LAST TREATMENT DATE: 26/OCT/2010
     Route: 042
     Dates: start: 20101005
  11. BEVACIZUMAB [Suspect]
     Active Substance: BEVACIZUMAB
     Indication: CARCINOID TUMOUR
     Dosage: COURSE 1
     Route: 042
     Dates: start: 20100112
  12. TEMSIROLIMUS [Suspect]
     Active Substance: TEMSIROLIMUS
     Indication: CARCINOID TUMOUR
     Dosage: COURSE 1
     Route: 042
     Dates: start: 20100112

REACTIONS (2)
  - Hyperglycaemia [Unknown]
  - Wound dehiscence [Unknown]
